FAERS Safety Report 9284698 (Version 1)
Quarter: 2013Q2

REPORT INFORMATION
  Report Type: Spontaneous
  Country: JP (occurrence: JP)
  Receive Date: 20130513
  Receipt Date: 20130513
  Transmission Date: 20140414
  Serious: Yes (Death, Other)
  Sender: FDA-Public Use
  Company Number: JP-PAR PHARMACEUTICAL, INC-2013SCPR005905

PATIENT
  Sex: 0

DRUGS (1)
  1. CLOMIPHENE CITRATE [Suspect]
     Indication: INFERTILITY
     Dosage: UNK, UNKNOWN
     Route: 065

REACTIONS (3)
  - Meningioma malignant [Fatal]
  - Death [Fatal]
  - Tumour haemorrhage [Unknown]
